FAERS Safety Report 11657145 (Version 2)
Quarter: 2015Q4

REPORT INFORMATION
  Report Type: Spontaneous
  Country: US (occurrence: None)
  Receive Date: 20151023
  Receipt Date: 20151112
  Transmission Date: 20160304
  Serious: No
  Sender: FDA-Public Use
  Company Number: US-MDT-ADR-2015-02017

PATIENT
  Age: 69 Year
  Sex: Male

DRUGS (2)
  1. BACLOFEN INTRATHECAL 500 MCG/ML [Suspect]
     Active Substance: BACLOFEN
     Indication: MUSCLE SPASTICITY
     Dosage: 100 MCG/DAY
  2. BACLOFEN. [Suspect]
     Active Substance: BACLOFEN

REACTIONS (4)
  - Overdose [None]
  - Device malfunction [None]
  - Underdose [None]
  - Therapeutic response unexpected [None]
